FAERS Safety Report 6640598-6 (Version None)
Quarter: 2010Q1

REPORT INFORMATION
  Report Type: 
  Country: None (occurrence: None)
  Receive Date: 20100318
  Receipt Date: 20100311
  Transmission Date: 20100710
  Serious: Yes (Hospitalization)
  Sender: FDA-Public Use
  Company Number: IT-BRISTOL-MYERS SQUIBB COMPANY-14952808

PATIENT
  Age: 46 Year
  Sex: Male

DRUGS (9)
  1. VUMON CONC INJ 50 MG/5 ML [Suspect]
     Indication: ACUTE LYMPHOCYTIC LEUKAEMIA
     Route: 042
     Dates: start: 20090323, end: 20090324
  2. ENDOXAN INJ [Suspect]
     Indication: ACUTE LYMPHOCYTIC LEUKAEMIA
     Dosage: ENDOXAN 500 MG POWDER FOR SOLUTION FOR INJECTION
     Route: 042
     Dates: start: 20090313, end: 20090317
  3. HOLOXAN PWDR INJ [Suspect]
     Indication: ACUTE LYMPHOCYTIC LEUKAEMIA
     Dosage: 1G POWDER FOR SOLUTION FOR INJECTION
     Route: 042
     Dates: start: 20090320, end: 20090324
  4. MABTHERA [Suspect]
     Indication: ACUTE LYMPHOCYTIC LEUKAEMIA
     Dosage: MABTHERA (VIAL 500MG 50ML)
     Route: 042
     Dates: start: 20090319
  5. URBASON [Suspect]
     Indication: ACUTE LYMPHOCYTIC LEUKAEMIA
     Dosage: URBASON (40 MG/ML POWDER FOR SOLUTION FOR INJECTION)
     Route: 042
     Dates: start: 20090313, end: 20090317
  6. VINCRISTINE [Suspect]
     Indication: ACUTE LYMPHOCYTIC LEUKAEMIA
     Dosage: 1 MG/ML SOLUTION FOR INFUSION
     Route: 042
     Dates: start: 20090319
  7. METOTREXATO [Suspect]
     Indication: ACUTE LYMPHOCYTIC LEUKAEMIA
     Dosage: 500MG/20ML INJECTABLE SOLUTION
     Route: 036
     Dates: start: 20090319
  8. DESAMETASONE [Suspect]
     Indication: ACUTE LYMPHOCYTIC LEUKAEMIA
     Dosage: DESAMETASONE FOSFATO (4 MG/ML INJECTABLE SOLUTION
     Route: 042
     Dates: start: 20090320, end: 20090324
  9. CYTARABINE [Suspect]
     Indication: ACUTE LYMPHOCYTIC LEUKAEMIA
     Dosage: 500 MG/10ML POWDER FOR SOLUTION FOR INJECTION
     Route: 042
     Dates: start: 20090323, end: 20090324

REACTIONS (3)
  - HYPERPYREXIA [None]
  - SEPSIS [None]
  - STOMATITIS [None]
